FAERS Safety Report 12188686 (Version 1)
Quarter: 2016Q1

REPORT INFORMATION
  Report Type: Spontaneous
  Country: US (occurrence: US)
  Receive Date: 20160317
  Receipt Date: 20160317
  Transmission Date: 20160526
  Serious: Yes (Life-Threatening, Hospitalization)
  Sender: FDA-Public Use
  Company Number: US-ACTAVIS-2016-05863

PATIENT
  Age: 17 Year
  Sex: Male

DRUGS (3)
  1. METOPROLOL (WATSON LABORATORIES) [Suspect]
     Active Substance: METOPROLOL
     Indication: SUICIDE ATTEMPT
     Dosage: UNK
     Route: 065
  2. CAFFEINE. [Concomitant]
     Active Substance: CAFFEINE
     Indication: PRODUCT USED FOR UNKNOWN INDICATION
     Dosage: UNK
     Route: 065
  3. AMLODIPINE [Suspect]
     Active Substance: AMLODIPINE BESYLATE
     Indication: SUICIDE ATTEMPT
     Dosage: UNK
     Route: 065

REACTIONS (3)
  - Overdose [Recovered/Resolved]
  - Cardiac arrest [Recovered/Resolved]
  - Mental status changes [Recovered/Resolved]
